FAERS Safety Report 7308496-2 (Version None)
Quarter: 2011Q1

REPORT INFORMATION
  Report Type: 
  Country: None (occurrence: None)
  Receive Date: 20110223
  Receipt Date: 20110208
  Transmission Date: 20110831
  Serious: Yes (Hospitalization)
  Sender: FDA-Public Use
  Company Number: IL-GENENTECH-313762

PATIENT
  Age: 58 Year
  Sex: Female

DRUGS (7)
  1. CYCLOPHOSPHAMIDE [Concomitant]
     Indication: NON-HODGKIN'S LYMPHOMA
     Dosage: UNK
     Dates: start: 20080709
  2. MABTHERA [Suspect]
     Indication: NON-HODGKIN'S LYMPHOMA
     Dosage: 700 MG, UNK
     Route: 042
  3. FLUDARA [Concomitant]
     Indication: NON-HODGKIN'S LYMPHOMA
     Dosage: UNK
  4. ONCOVIN [Concomitant]
     Indication: NON-HODGKIN'S LYMPHOMA
     Dosage: UNK
     Dates: start: 20080709
  5. PREDNISONE [Concomitant]
     Indication: NON-HODGKIN'S LYMPHOMA
     Dosage: UNK
     Dates: start: 20080709
  6. NEULASTIM [Suspect]
     Indication: PRODUCT USED FOR UNKNOWN INDICATION
     Dosage: UNK
     Route: 065
  7. HYDROXYDAUNORUBICIN [Concomitant]
     Indication: NON-HODGKIN'S LYMPHOMA
     Dosage: UNK
     Dates: start: 20080709

REACTIONS (17)
  - FAT TISSUE INCREASED [None]
  - CHILLS [None]
  - PYREXIA [None]
  - URINE ABNORMALITY [None]
  - RASH [None]
  - HYPERURICAEMIA [None]
  - GRANULOCYTOPENIA [None]
  - NEUTROPENIA [None]
  - LIVER DISORDER [None]
  - HEPATIC STEATOSIS [None]
  - STEVENS-JOHNSON SYNDROME [None]
  - OEDEMA [None]
  - HEPATIC ENZYME INCREASED [None]
  - HYPERSENSITIVITY [None]
  - URTICARIA [None]
  - THROMBOCYTOPENIA [None]
  - PARAESTHESIA [None]
